FAERS Safety Report 15573413 (Version 2)
Quarter: 2018Q4

REPORT INFORMATION
  Report Type: Spontaneous
  Country: US (occurrence: US)
  Receive Date: 20181101
  Receipt Date: 20181106
  Transmission Date: 20190205
  Serious: No
  Sender: FDA-Public Use
  Company Number: US-BIOGEN-2018BI00652625

PATIENT
  Sex: Female

DRUGS (1)
  1. AVONEX [Suspect]
     Active Substance: INTERFERON BETA-1A
     Indication: MULTIPLE SCLEROSIS
     Route: 030
     Dates: start: 201711, end: 20181019

REACTIONS (9)
  - Influenza like illness [Unknown]
  - Nuclear magnetic resonance imaging abnormal [Unknown]
  - Contusion [Unknown]
  - Treatment failure [Unknown]
  - Limb mass [Unknown]
  - Diarrhoea [Unknown]
  - Chills [Unknown]
  - Malaise [Unknown]
  - Vomiting [Unknown]
